FAERS Safety Report 11988773 (Version 1)
Quarter: 2016Q1

REPORT INFORMATION
  Report Type: Report from Study
  Country: CA (occurrence: CA)
  Receive Date: 20160202
  Receipt Date: 20160202
  Transmission Date: 20160526
  Serious: Yes (Hospitalization)
  Sender: FDA-Public Use
  Company Number: CA-JNJFOC-20160121082

PATIENT
  Age: 29 Year
  Sex: Male
  Weight: 73 kg

DRUGS (4)
  1. VITAMIN D [Concomitant]
     Active Substance: CHOLECALCIFEROL
     Route: 065
  2. REMICADE [Suspect]
     Active Substance: INFLIXIMAB
     Indication: CROHN^S DISEASE
     Route: 042
  3. VITAMIN C [Concomitant]
     Active Substance: ASCORBIC ACID
     Route: 065
  4. IRON [Concomitant]
     Active Substance: IRON
     Route: 065

REACTIONS (2)
  - Appendicectomy [Recovering/Resolving]
  - Abdominal pain [Recovering/Resolving]

NARRATIVE: CASE EVENT DATE: 201512
